FAERS Safety Report 19265759 (Version 4)
Quarter: 2022Q2

REPORT INFORMATION
  Report Type: Report from Study
  Country: KR (occurrence: KR)
  Receive Date: 20210517
  Receipt Date: 20220620
  Transmission Date: 20220721
  Serious: Yes (Hospitalization, Other)
  Sender: FDA-Public Use
  Company Number: KR-BRISTOL-MYERS SQUIBB COMPANY-BMS-2021-047126

PATIENT
  Age: 90 Year
  Sex: Male
  Weight: 83 kg

DRUGS (1)
  1. NIVOLUMAB [Suspect]
     Active Substance: NIVOLUMAB
     Indication: Non-small cell lung cancer
     Dosage: 3 MILLIGRAM/KILOGRAM, Q2WK
     Route: 041
     Dates: start: 20200525, end: 20210614

REACTIONS (2)
  - Pyrexia [Recovered/Resolved with Sequelae]
  - Diverticulum intestinal [Recovered/Resolved]

NARRATIVE: CASE EVENT DATE: 20210417
